FAERS Safety Report 24806467 (Version 2)
Quarter: 2025Q1

REPORT INFORMATION
  Report Type: Spontaneous
  Country: US (occurrence: US)
  Receive Date: 20250103
  Receipt Date: 20250109
  Transmission Date: 20250408
  Serious: No
  Sender: SUNOVION
  Company Number: US-SMPA-2024SPA006293AA

PATIENT

DRUGS (1)
  1. MYFEMBREE [Suspect]
     Active Substance: ESTRADIOL HEMIHYDRATE\NORETHINDRONE ACETATE\RELUGOLIX
     Route: 048

REACTIONS (4)
  - Nausea [Recovered/Resolved]
  - Trichorrhexis [Recovered/Resolved]
  - Loss of libido [Recovered/Resolved]
  - Toothache [Recovered/Resolved]
